FAERS Safety Report 5115565-4 (Version None)
Quarter: 2006Q3

REPORT INFORMATION
  Report Type: 
  Country: None (occurrence: None)
  Receive Date: 20060927
  Receipt Date: 20060518
  Transmission Date: 20061208
  Serious: Yes (Death, Hospitalization, Other)
  Sender: FDA-Public Use
  Company Number: US-ABBOTT-06P-163-0333502-00

PATIENT
  Sex: Female
  Weight: 88.53 kg

DRUGS (8)
  1. DEPAKOTE ER [Suspect]
     Indication: CONVULSION
     Route: 048
     Dates: start: 20060118, end: 20060501
  2. DEPAKOTE ER [Suspect]
     Indication: AFFECTIVE DISORDER
  3. RISPERIDONE [Concomitant]
     Indication: AFFECTIVE DISORDER
     Route: 030
     Dates: end: 20060501
  4. ALBUTEROL SPIROS [Concomitant]
     Indication: DYSPNOEA
     Route: 055
     Dates: end: 20060501
  5. ESOMEPRAZOLE MAGNESIUM [Concomitant]
     Indication: DRUG USE FOR UNKNOWN INDICATION
     Route: 048
     Dates: end: 20060501
  6. SERETIDE MITE [Concomitant]
     Indication: DYSPNOEA
     Dosage: 250/50 BID
     Route: 055
     Dates: end: 20060501
  7. ATORVASTATIN [Concomitant]
     Indication: BLOOD CHOLESTEROL INCREASED
     Route: 048
     Dates: end: 20060501
  8. ASPIRIN [Concomitant]
     Indication: DRUG USE FOR UNKNOWN INDICATION
     Route: 048
     Dates: end: 20060501

REACTIONS (3)
  - DEATH [None]
  - RESPIRATORY FAILURE [None]
  - UNRESPONSIVE TO STIMULI [None]
